FAERS Safety Report 12598907 (Version 2)
Quarter: 2016Q3

REPORT INFORMATION
  Report Type: Report from Study
  Country: NL (occurrence: NL)
  Receive Date: 20160726
  Receipt Date: 20160823
  Transmission Date: 20161109
  Serious: Yes (Death, Hospitalization)
  Sender: FDA-Public Use
  Company Number: NL-AMGEN-NLDSL2016095881

PATIENT
  Age: 59 Year
  Sex: Female
  Weight: 84 kg

DRUGS (2)
  1. XGEVA [Suspect]
     Active Substance: DENOSUMAB
     Indication: PROPHYLAXIS
     Dosage: 120 MG, (1.7 ML) Q4WK
     Route: 058
     Dates: start: 201603, end: 201607
  2. XGEVA [Suspect]
     Active Substance: DENOSUMAB
     Dosage: UNK
     Route: 058

REACTIONS (2)
  - Disease progression [Fatal]
  - Dyspnoea [Fatal]

NARRATIVE: CASE EVENT DATE: 20160704
